FAERS Safety Report 4563721-6 (Version None)
Quarter: 2005Q1

REPORT INFORMATION
  Report Type: 
  Country: None (occurrence: None)
  Receive Date: 20050128
  Receipt Date: 20050118
  Transmission Date: 20050727
  Serious: Yes (Other)
  Sender: FDA-Public Use
  Company Number: PHBS2005JP01077

PATIENT
  Age: 5 Year
  Sex: Female

DRUGS (3)
  1. COMELIAN [Concomitant]
  2. PERSANTIN [Concomitant]
  3. ZADITEN [Suspect]
     Indication: HYPERSENSITIVITY
     Route: 048
     Dates: end: 20041201

REACTIONS (3)
  - BLOOD BILIRUBIN INCREASED [None]
  - CHOLESTASIS [None]
  - JAUNDICE [None]
